FAERS Safety Report 6946819-4 (Version None)
Quarter: 2010Q3

REPORT INFORMATION
  Report Type: 
  Country: None (occurrence: None)
  Receive Date: 20100827
  Receipt Date: 20090814
  Transmission Date: 20110219
  Serious: No
  Sender: FDA-Public Use
  Company Number: US-ABBOTT-09P-163-0592078-00

PATIENT
  Sex: Male
  Weight: 83.99 kg

DRUGS (7)
  1. NIASPAN [Suspect]
     Indication: BLOOD CHOLESTEROL INCREASED
     Dates: start: 20090701
  2. REBIF [Concomitant]
     Indication: MULTIPLE SCLEROSIS
  3. ANTARA (MICRONIZED) [Concomitant]
     Indication: BLOOD CHOLESTEROL INCREASED
  4. AVODART [Concomitant]
     Indication: PROSTATIC DISORDER
  5. ATIVAN [Concomitant]
     Indication: ANXIETY
  6. ZIBEL [Concomitant]
     Indication: STRESS
  7. ASPIRIN [Concomitant]
     Indication: CARDIAC DISORDER

REACTIONS (2)
  - FLUSHING [None]
  - PRURITUS [None]
